FAERS Safety Report 6437131-0 (Version None)
Quarter: 2009Q4

REPORT INFORMATION
  Report Type: 
  Country: None (occurrence: None)
  Receive Date: 20091110
  Receipt Date: 20080123
  Transmission Date: 20100525
  Serious: No
  Sender: FDA-Public Use
  Company Number: AEUSA200700288

PATIENT
  Age: 35 Year
  Sex: Male
  Weight: 68.0396 kg

DRUGS (2)
  1. GAMUNEX [Suspect]
     Indication: IMMUNODEFICIENCY
     Dosage: 40 GM; 1X; IV
     Route: 042
     Dates: start: 20070601
  2. GAMUNEX [Suspect]

REACTIONS (5)
  - PRURITUS [None]
  - RASH GENERALISED [None]
  - RASH MACULAR [None]
  - SKIN DISCOLOURATION [None]
  - ULCER [None]
